FAERS Safety Report 12562042 (Version 1)
Quarter: 2016Q3

REPORT INFORMATION
  Report Type: Other
  Country: JP (occurrence: JP)
  Receive Date: 20160715
  Receipt Date: 20160715
  Transmission Date: 20161109
  Serious: Yes (Hospitalization)
  Sender: FDA-Public Use
  Company Number: JP-ACTELION-A-CH2016-139159

PATIENT
  Age: 87 Year
  Sex: Female

DRUGS (6)
  1. DOBUTAMINE [Concomitant]
     Active Substance: DOBUTAMINE\DOBUTAMINE HYDROCHLORIDE
  2. EPOPROSTENOL ACT [Suspect]
     Active Substance: EPOPROSTENOL
     Indication: PULMONARY ARTERIAL HYPERTENSION
     Dosage: 0.6 NG/KG, PER MIN
     Route: 042
  3. BERAPROST [Concomitant]
     Active Substance: BERAPROST
  4. OXYGEN. [Concomitant]
     Active Substance: OXYGEN
  5. TADALAFIL [Concomitant]
     Active Substance: TADALAFIL
  6. TRACLEER [Suspect]
     Active Substance: BOSENTAN
     Indication: PULMONARY ARTERIAL HYPERTENSION
     Dosage: UNK
     Route: 048

REACTIONS (8)
  - Drug effect incomplete [Unknown]
  - Pulmonary congestion [Recovering/Resolving]
  - Oxygen saturation decreased [Recovering/Resolving]
  - Pulmonary arterial hypertension [Unknown]
  - Dyspnoea [Unknown]
  - Cardiac output decreased [Unknown]
  - Condition aggravated [Unknown]
  - Pulmonary veno-occlusive disease [Recovering/Resolving]
